FAERS Safety Report 4642051-8 (Version None)
Quarter: 2005Q2

REPORT INFORMATION
  Report Type: 
  Country: None (occurrence: None)
  Receive Date: 20050421
  Receipt Date: 20050331
  Transmission Date: 20051028
  Serious: Yes (Death)
  Sender: FDA-Public Use
  Company Number: FR_050205864

PATIENT
  Age: 46 Year
  Sex: Male
  Weight: 61 kg

DRUGS (11)
  1. GEMZAR [Suspect]
     Indication: LUNG ADENOCARCINOMA
     Dosage: 2000 MG OTHER
     Route: 042
     Dates: start: 20050105
  2. GEMZAR [Suspect]
     Indication: SMALL CELL LUNG CANCER STAGE UNSPECIFIED
     Dosage: 2000 MG OTHER
     Route: 042
     Dates: start: 20050105
  3. CISPLATIN [Concomitant]
  4. OMEPRAZOLE [Concomitant]
  5. ONDANSETRON HYDROCHLORIDE [Concomitant]
  6. LOVENOX [Concomitant]
  7. KETEK [Concomitant]
  8. SURBRONC              (AMBROXOL HYDROCHLORIDE) [Concomitant]
  9. MEDROL [Concomitant]
  10. ETHYOL [Concomitant]
  11. PRIMPERAN ELIXIR [Concomitant]

REACTIONS (5)
  - BLOOD CREATININE INCREASED [None]
  - COAGULATION FACTOR V LEVEL DECREASED [None]
  - HEPATIC FAILURE [None]
  - HEPATITIS CHOLESTATIC [None]
  - HYPERGAMMAGLOBULINAEMIA [None]
